FAERS Safety Report 22062026 (Version 2)
Quarter: 2023Q1

REPORT INFORMATION
  Report Type: Report from Study
  Country: GB (occurrence: GB)
  Receive Date: 20230304
  Receipt Date: 20230321
  Transmission Date: 20230418
  Serious: Yes (Death)
  Sender: FDA-Public Use
  Company Number: GB-002147023-NVSC2022GB096960

PATIENT
  Sex: Male

DRUGS (1)
  1. COSENTYX [Suspect]
     Active Substance: SECUKINUMAB
     Indication: Psoriatic arthropathy
     Dosage: 150 MG, QMO (2 PRE-FILLED DISPOSABLE INJECTION)
     Route: 058

REACTIONS (3)
  - Cardiac disorder [Fatal]
  - Renal disorder [Fatal]
  - Cardiac murmur [Recovering/Resolving]
